FAERS Safety Report 4428243-1 (Version None)
Quarter: 2004Q3

REPORT INFORMATION
  Report Type: 
  Country: None (occurrence: None)
  Receive Date: 20040813
  Receipt Date: 20040801
  Transmission Date: 20050211
  Serious: No
  Sender: FDA-Public Use
  Company Number: 04H-163-0269668-00

PATIENT
  Age: 60 Year
  Sex: Male

DRUGS (8)
  1. ERYTHROCIN LACTOBIONATE INJECTION (ERYTHROMYCIN LACTOBIONATE)  (ERYTHR [Suspect]
     Indication: INFECTION
     Dosage: 1 GM, EVERY 6 HOURS
  2. CYTARABINE [Concomitant]
  3. TIOGUANINE [Concomitant]
  4. DAUNORUBICIN HYDROCHLORIDE [Concomitant]
  5. NAFCILLIN SODIUM [Concomitant]
  6. TOBRAMYCIN SULFATE [Concomitant]
  7. PIPERACILLIN SODIUM [Concomitant]
  8. FUROSEMIDE [Concomitant]

REACTIONS (4)
  - DEAFNESS NEUROSENSORY [None]
  - HALLUCINATION, VISUAL [None]
  - OTOTOXICITY [None]
  - PSYCHOTIC DISORDER [None]
